FAERS Safety Report 18569968 (Version 1)
Quarter: 2020Q4

REPORT INFORMATION
  Report Type: Spontaneous
  Country: US (occurrence: US)
  Receive Date: 20201201
  Receipt Date: 20201201
  Transmission Date: 20210114
  Serious: Yes (Death)
  Sender: FDA-Public Use
  Company Number: None

PATIENT
  Sex: Female

DRUGS (2)
  1. NEORAL [Suspect]
     Active Substance: CYCLOSPORINE
     Indication: RENAL TRANSPLANT
     Dosage: 25MG 1 AM AND 2 PM BID BY MOUTH?
     Route: 048
  2. MYCOPHENOLATE 250MG CAPSULES [Suspect]
     Active Substance: MYCOPHENOLATE MOFETIL
     Dosage: 250MG 1 AM AND 2 PM BID BY MOUTH
     Route: 048

REACTIONS (1)
  - Death [None]
